FAERS Safety Report 7350135-9 (Version None)
Quarter: 2011Q1

REPORT INFORMATION
  Report Type: 
  Country: None (occurrence: None)
  Receive Date: 20110314
  Receipt Date: 20110308
  Transmission Date: 20110831
  Serious: Yes (Death, Life-Threatening)
  Sender: FDA-Public Use
  Company Number: A0917173A

PATIENT
  Age: 56 Year
  Sex: Male

DRUGS (8)
  1. SYNTHROID [Concomitant]
  2. NORVASC [Concomitant]
  3. CHANTIX [Concomitant]
  4. LISINOPRIL [Concomitant]
  5. WARFARIN [Concomitant]
  6. LASIX [Concomitant]
  7. COREG [Suspect]
     Dosage: 6.25MG TWICE PER DAY
     Route: 048
     Dates: end: 20110201
  8. LIPITOR [Concomitant]

REACTIONS (1)
  - CEREBROVASCULAR ACCIDENT [None]
